FAERS Safety Report 9791453 (Version 1)
Quarter: 2014Q1

REPORT INFORMATION
  Report Type: Spontaneous
  Country: CA (occurrence: CA)
  Receive Date: 20140101
  Receipt Date: 20140101
  Transmission Date: 20141002
  Serious: Yes (Other)
  Sender: FDA-Public Use
  Company Number: CHPA2013CA019006

PATIENT
  Sex: Male

DRUGS (1)
  1. BUCKLEY^S UNKNOWN [Suspect]
     Indication: COUGH
     Route: 048

REACTIONS (3)
  - Loss of consciousness [Unknown]
  - Abdominal pain upper [Unknown]
  - Drug ineffective [Unknown]
